FAERS Safety Report 15601459 (Version 2)
Quarter: 2018Q4

REPORT INFORMATION
  Report Type: Spontaneous
  Country: US (occurrence: US)
  Receive Date: 20181109
  Receipt Date: 20181113
  Transmission Date: 20190205
  Serious: No
  Sender: FDA-Public Use
  Company Number: US-TEVA-2018-US-971525

PATIENT
  Age: 51 Year
  Sex: Female

DRUGS (2)
  1. ENOXAINJ [Suspect]
     Active Substance: ENOXAPARIN
     Route: 065
     Dates: start: 20181029
  2. ENOXAINJ [Suspect]
     Active Substance: ENOXAPARIN
     Indication: PROPHYLAXIS
     Dosage: FORM STRENGTH: 80 MG/0.8 ML
     Route: 065
     Dates: start: 201804, end: 201805

REACTIONS (4)
  - Malaise [Unknown]
  - Product prescribing error [Unknown]
  - Influenza [Unknown]
  - Product storage error [Unknown]

NARRATIVE: CASE EVENT DATE: 201804
